FAERS Safety Report 20016912 (Version 1)
Quarter: 2021Q4

REPORT INFORMATION
  Report Type: Spontaneous
  Country: US (occurrence: None)
  Receive Date: 20211105
  Receipt Date: 20211105
  Transmission Date: 20220303
  Serious: Yes (Hospitalization)
  Sender: FDA-Public Use
  Company Number: None

PATIENT
  Age: 70 Year
  Sex: Male

DRUGS (1)
  1. TECARTUS [Suspect]
     Active Substance: BREXUCABTAGENE AUTOLEUCEL
     Indication: Mantle cell lymphoma
     Dates: start: 20210426, end: 20210426

REACTIONS (7)
  - Neurotoxicity [None]
  - Tumour lysis syndrome [None]
  - Cytokine release syndrome [None]
  - Intracranial mass [None]
  - Central nervous system lymphoma [None]
  - Encephalopathy [None]
  - Pancytopenia [None]

NARRATIVE: CASE EVENT DATE: 20210501
